FAERS Safety Report 10077365 (Version 1)
Quarter: 2014Q2

REPORT INFORMATION
  Report Type: Spontaneous
  Country: DE (occurrence: None)
  Receive Date: 20140411
  Receipt Date: 20140411
  Transmission Date: 20141212
  Serious: Yes (Hospitalization, Other)
  Sender: FDA-Public Use
  Company Number: 2014-19332

PATIENT
  Age: 86 Year
  Sex: Female

DRUGS (5)
  1. EYLEA [Suspect]
     Indication: AGE-RELATED MACULAR DEGENERATION
     Route: 031
     Dates: start: 201310, end: 201401
  2. PREVISCAN /00261401/ (PENTOXIFYLLINE) [Concomitant]
  3. TRIATEC /00116401/(CODEINE PHOSPHATE, PARACETAMOL) [Concomitant]
  4. LEVOTHYROX (LEVOTHYROXINE SODIUM) [Concomitant]
  5. FLECAINE (FLECAINIDE ACETATE) [Concomitant]

REACTIONS (2)
  - International normalised ratio decreased [None]
  - Cerebrovascular accident [None]
